FAERS Safety Report 8598830-8 (Version None)
Quarter: 2012Q3

REPORT INFORMATION
  Report Type: 
  Country: None (occurrence: None)
  Receive Date: 20120816
  Receipt Date: 20120308
  Transmission Date: 20120928
  Serious: Yes (Hospitalization)
  Sender: FDA-Public Use
  Company Number: JP-GLAXOSMITHKLINE-B0787988A

PATIENT
  Sex: Female

DRUGS (8)
  1. DIOVAN [Concomitant]
     Indication: HYPERTENSION
     Dosage: 100MG PER DAY
     Route: 048
  2. CLONAZEPAM [Concomitant]
     Indication: DEPRESSION
     Dosage: 1MG PER DAY
     Route: 048
  3. ALDACTONE [Concomitant]
     Indication: HYPERTENSION
     Dosage: 25MG PER DAY
     Route: 048
  4. LAMICTAL [Suspect]
     Indication: DEPRESSION
     Dosage: 25MG PER DAY
     Route: 048
     Dates: start: 20120207, end: 20120228
  5. LEXAPRO [Concomitant]
     Indication: DEPRESSION
     Dosage: 10MG PER DAY
     Route: 048
  6. LAMICTAL [Suspect]
     Dosage: 50MG PER DAY
     Route: 048
     Dates: start: 20120229, end: 20120302
  7. GASMOTIN [Concomitant]
     Dosage: 5MG PER DAY
     Route: 048
  8. FUROSEMIDE [Concomitant]
     Indication: HYPERTENSION
     Dosage: 20MG PER DAY
     Route: 048

REACTIONS (25)
  - PRURITUS [None]
  - LYMPHOCYTE PERCENTAGE DECREASED [None]
  - PAPULE [None]
  - PROTEIN TOTAL DECREASED [None]
  - GAMMA-GLUTAMYLTRANSFERASE INCREASED [None]
  - C-REACTIVE PROTEIN INCREASED [None]
  - ALANINE AMINOTRANSFERASE INCREASED [None]
  - BLOOD ALBUMIN DECREASED [None]
  - IMMUNOGLOBULINS DECREASED [None]
  - RASH GENERALISED [None]
  - BLOOD LACTATE DEHYDROGENASE INCREASED [None]
  - DRUG ERUPTION [None]
  - URTICARIA [None]
  - ERYTHEMA [None]
  - ECZEMA [None]
  - MONOCYTE PERCENTAGE INCREASED [None]
  - EOSINOPHIL PERCENTAGE INCREASED [None]
  - PYREXIA [None]
  - OLIGURIA [None]
  - WHITE BLOOD CELL COUNT INCREASED [None]
  - DRUG RASH WITH EOSINOPHILIA AND SYSTEMIC SYMPTOMS [None]
  - LYMPHADENOPATHY [None]
  - GENERALISED OEDEMA [None]
  - NEUTROPHIL PERCENTAGE INCREASED [None]
  - BLOOD IMMUNOGLOBULIN G DECREASED [None]
